FAERS Safety Report 16748169 (Version 4)
Quarter: 2020Q1

REPORT INFORMATION
  Report Type: Report from Study
  Country: DE (occurrence: DE)
  Receive Date: 20190827
  Receipt Date: 20200207
  Transmission Date: 20200409
  Serious: Yes (Death, Hospitalization, Other)
  Sender: FDA-Public Use
  Company Number: DE-GILEAD-2019-0403466

PATIENT
  Age: 71 Year
  Sex: Female
  Weight: 57 kg

DRUGS (36)
  1. FLUCONAZOL [Concomitant]
     Active Substance: FLUCONAZOLE
     Dosage: 200 MG, QD
     Route: 048
     Dates: start: 20200103, end: 20200106
  2. REDUCTO [Concomitant]
     Dosage: UNK
     Route: 048
     Dates: start: 20200103, end: 20200105
  3. PANTOPRAZOLE [Concomitant]
     Active Substance: PANTOPRAZOLE
     Dosage: 20 UNK
     Dates: start: 20180815
  4. ZOPICLON [Concomitant]
     Active Substance: ZOPICLONE
     Dosage: 7.5 MG, UNK
     Dates: start: 20190410
  5. FOLIC ACID. [Concomitant]
     Active Substance: FOLIC ACID
     Dosage: 5 MG, QD
     Route: 048
     Dates: start: 20190718
  6. METAMIZOLE [Concomitant]
     Active Substance: METAMIZOLE
  7. TRYASOL [Concomitant]
  8. EMSER [EMSER SALT] [Concomitant]
  9. PANTOPRAZOL [PANTOPRAZOLE SODIUM SESQUIHYDRATE] [Concomitant]
     Active Substance: PANTOPRAZOLE SODIUM
     Dosage: 20 MG, QD
     Route: 048
     Dates: start: 20200103, end: 20200106
  10. PANTOPRAZOLE [Concomitant]
     Active Substance: PANTOPRAZOLE
     Dosage: 20 MG
     Route: 048
     Dates: start: 20190328
  11. METOHEXAL [METOPROLOL SUCCINATE] [Concomitant]
     Active Substance: METOPROLOL SUCCINATE
     Dosage: 95 MG
     Route: 048
     Dates: start: 20190329
  12. OXYGEN. [Concomitant]
     Active Substance: OXYGEN
  13. PLATELETS [Concomitant]
     Active Substance: HUMAN PLATELET, ALLOGENIC
     Dosage: UNK
     Dates: start: 20190328, end: 20190328
  14. IDELALISIB [Suspect]
     Active Substance: IDELALISIB
     Indication: CHRONIC LYMPHOCYTIC LEUKAEMIA
     Dosage: 100 MG, BID
     Route: 048
     Dates: start: 20190417, end: 20190731
  15. DEKRISTOL [Concomitant]
     Active Substance: CHOLECALCIFEROL
  16. TOREM [TORASEMIDE SODIUM] [Concomitant]
  17. PARACETAMOL [Concomitant]
     Active Substance: ACETAMINOPHEN
  18. MOVICOL-HALF [Concomitant]
  19. COTRIM [Concomitant]
     Active Substance: SULFAMETHOXAZOLE\TRIMETHOPRIM
     Dosage: 960 MG, QD
     Route: 048
     Dates: start: 20200106, end: 20200106
  20. ALLOPURINOL. [Concomitant]
     Active Substance: ALLOPURINOL
     Dosage: 300 MG
     Route: 048
     Dates: start: 20190327
  21. SALOFALK [AMINOSALICYLIC ACID] [Concomitant]
     Active Substance: AMINOSALICYLIC ACID
     Dosage: UNK
     Dates: start: 20180815, end: 20190403
  22. AMLODIPIN [AMLODIPINE BESILATE] [Concomitant]
     Active Substance: AMLODIPINE BESYLATE
  23. IMMUNOGLOBULINS NOS [Concomitant]
     Active Substance: IMMUNE GLOBULIN NOS
  24. OBINUTUZUMAB. [Suspect]
     Active Substance: OBINUTUZUMAB
     Dosage: UNK MG
     Route: 042
     Dates: start: 20190813
  25. COTRIMOXAZOLE [Concomitant]
     Active Substance: SULFAMETHOXAZOLE\TRIMETHOPRIM
     Indication: ANTIFUNGAL PROPHYLAXIS
     Dosage: 960 MG
     Route: 048
     Dates: start: 20180815, end: 20200103
  26. LEVOFLOXACIN. [Concomitant]
     Active Substance: LEVOFLOXACIN
  27. METOPROLOL. [Concomitant]
     Active Substance: METOPROLOL
  28. KIOVIG [Concomitant]
     Active Substance: HUMAN IMMUNOGLOBULIN G
  29. VALGANCICLOVIR. [Concomitant]
     Active Substance: VALGANCICLOVIR
     Dosage: 450 MG, QD
     Route: 048
     Dates: start: 20200104, end: 20200106
  30. IDELALISIB [Suspect]
     Active Substance: IDELALISIB
     Dosage: UNK UNK, BID
     Route: 048
     Dates: start: 20190813
  31. OBINUTUZUMAB. [Suspect]
     Active Substance: OBINUTUZUMAB
     Indication: CHRONIC LYMPHOCYTIC LEUKAEMIA
     Dosage: 1000 MG
     Route: 042
     Dates: start: 20190319, end: 20190710
  32. ARIXTRA [Concomitant]
     Active Substance: FONDAPARINUX SODIUM
     Dosage: 2.5 MG, UNK
     Route: 058
     Dates: start: 20190417
  33. BELOC [METOPROLOL SUCCINATE] [Concomitant]
     Active Substance: METOPROLOL SUCCINATE
  34. VENETOCLAX. [Concomitant]
     Active Substance: VENETOCLAX
  35. HEPARIN [Concomitant]
     Active Substance: HEPARIN SODIUM
  36. URSOFALK [Concomitant]
     Active Substance: URSODIOL
     Dosage: 250 MG, QD
     Route: 048
     Dates: start: 20190426

REACTIONS (4)
  - Pleural infection [Recovered/Resolved]
  - Pulmonary sepsis [Fatal]
  - Hyponatraemia [Recovered/Resolved]
  - Inappropriate antidiuretic hormone secretion [Recovered/Resolved]

NARRATIVE: CASE EVENT DATE: 20190417
